FAERS Safety Report 7722306-0 (Version None)
Quarter: 2011Q3

REPORT INFORMATION
  Report Type: 
  Country: None (occurrence: None)
  Receive Date: 20110831
  Receipt Date: 20110824
  Transmission Date: 20111222
  Serious: Yes (Life-Threatening, Other)
  Sender: FDA-Public Use
  Company Number: QA-ROXANE LABORATORIES, INC.-2011-RO-01190RO

PATIENT
  Age: 30 Year
  Sex: Male

DRUGS (1)
  1. OXCARBAZEPINE [Suspect]
     Indication: DYSKINESIA
     Dosage: 600 MG
     Route: 048

REACTIONS (4)
  - VENTRICULAR FIBRILLATION [None]
  - SUDDEN CARDIAC DEATH [None]
  - BRUGADA SYNDROME [None]
  - LOSS OF CONSCIOUSNESS [None]
